FAERS Safety Report 6825190-2 (Version None)
Quarter: 2010Q3

REPORT INFORMATION
  Report Type: 
  Country: None (occurrence: None)
  Receive Date: 20100708
  Receipt Date: 20070129
  Transmission Date: 20110219
  Serious: Yes (Other)
  Sender: FDA-Public Use
  Company Number: US-PFIZER INC-2007001386

PATIENT
  Sex: Female
  Weight: 50.8 kg

DRUGS (4)
  1. VARENICLINE [Suspect]
     Indication: SMOKING CESSATION THERAPY
     Dates: start: 20061230, end: 20070101
  2. XANAX [Concomitant]
  3. LUVOX [Concomitant]
  4. TENORMIN [Concomitant]

REACTIONS (3)
  - EXTRASYSTOLES [None]
  - FEELING ABNORMAL [None]
  - TREMOR [None]
